FAERS Safety Report 14820903 (Version 1)
Quarter: 2018Q2

REPORT INFORMATION
  Report Type: Spontaneous
  Country: FR (occurrence: FR)
  Receive Date: 20180427
  Receipt Date: 20180427
  Transmission Date: 20180711
  Serious: Yes (Other)
  Sender: FDA-Public Use
  Company Number: FR-MERCK KGAA-2046738

PATIENT
  Age: 48 Year
  Sex: Female

DRUGS (2)
  1. ADEPAL [Concomitant]
     Active Substance: ETHINYL ESTRADIOL\LEVONORGESTREL
  2. NOVOTHYROX [Suspect]
     Active Substance: LEVOTHYROXINE SODIUM
     Indication: PRODUCT USED FOR UNKNOWN INDICATION

REACTIONS (25)
  - Fatigue [None]
  - Red blood cell count decreased [None]
  - Mean cell volume increased [None]
  - C-reactive protein increased [None]
  - Blood pressure decreased [None]
  - Somnolence [None]
  - Blood cholesterol increased [None]
  - Blood thyroid stimulating hormone increased [Not Recovered/Not Resolved]
  - Disturbance in attention [None]
  - Phobia of driving [None]
  - Stress [None]
  - Alopecia [None]
  - Headache [None]
  - Muscle spasms [None]
  - Serum ferritin increased [None]
  - Gamma-glutamyltransferase increased [None]
  - Loss of personal independence in daily activities [None]
  - Palpitations [None]
  - Amenorrhoea [None]
  - Irritability [None]
  - Asthenia [None]
  - Arthralgia [None]
  - Gastrointestinal motility disorder [None]
  - Muscular weakness [None]
  - Weight decreased [None]

NARRATIVE: CASE EVENT DATE: 20170124
